FAERS Safety Report 14340037 (Version 5)
Quarter: 2018Q1

REPORT INFORMATION
  Report Type: Spontaneous
  Country: DE (occurrence: DE)
  Receive Date: 20171231
  Receipt Date: 20180228
  Transmission Date: 20180509
  Serious: Yes (Life-Threatening, Hospitalization)
  Sender: FDA-Public Use
  Company Number: DE-TEVA-2017-DE-833392

PATIENT
  Age: 53 Year
  Sex: Male
  Weight: 91 kg

DRUGS (4)
  1. HEPARIN-NATRIUM-25000-RATIOPHARM [Suspect]
     Active Substance: HEPARIN SODIUM
     Dosage: REPEATED ADMINISTRATION WITH OTHER BATCH
     Route: 042
     Dates: start: 20171207
  2. NITROLINGUAL INFUS 5MG [Concomitant]
     Dosage: ROUTE OF ADMINISTRATION: INTRA-ARTERIAL, INTRA-CUTAN; DOSAGE: EACH 0.2MG
     Route: 013
  3. HEPARIN-NATRIUM-25000-RATIOPHARM [Suspect]
     Active Substance: HEPARIN SODIUM
     Dosage: SECOND DOSE
     Route: 042
     Dates: start: 20171207
  4. HEPARIN-NATRIUM-25000-RATIOPHARM [Suspect]
     Active Substance: HEPARIN SODIUM
     Indication: ANTICOAGULANT THERAPY
     Route: 042
     Dates: start: 20171207

REACTIONS (5)
  - Drug ineffective [Recovered/Resolved]
  - Product quality issue [Unknown]
  - Thrombosis [Recovered/Resolved]
  - Periprocedural myocardial infarction [Recovered/Resolved]
  - Coagulation time abnormal [Recovered/Resolved]

NARRATIVE: CASE EVENT DATE: 20171207
